FAERS Safety Report 18976142 (Version 1)
Quarter: 2021Q1

REPORT INFORMATION
  Report Type: Spontaneous
  Country: CN (occurrence: CN)
  Receive Date: 20210305
  Receipt Date: 20210305
  Transmission Date: 20210420
  Serious: Yes (Other)
  Sender: FDA-Public Use
  Company Number: CN-ROCHE-2779954

PATIENT
  Age: 79 Year
  Sex: Female

DRUGS (14)
  1. FLUOROURACIL. [Concomitant]
     Active Substance: FLUOROURACIL
     Indication: TUMOUR ULCERATION
  2. REGORAFENIB. [Concomitant]
     Active Substance: REGORAFENIB
     Indication: TUMOUR ULCERATION
     Route: 048
     Dates: start: 20201220
  3. XELODA [Suspect]
     Active Substance: CAPECITABINE
     Indication: TUMOUR ULCERATION
     Dosage: IN THE MORINING
     Route: 048
     Dates: start: 20160831
  4. AVASTIN [Suspect]
     Active Substance: BEVACIZUMAB
     Indication: TUMOUR ULCERATION
     Route: 041
     Dates: start: 20160831
  5. AVASTIN [Suspect]
     Active Substance: BEVACIZUMAB
     Route: 041
     Dates: start: 20170110
  6. AVASTIN [Suspect]
     Active Substance: BEVACIZUMAB
     Route: 041
     Dates: start: 20181008
  7. XELODA [Suspect]
     Active Substance: CAPECITABINE
     Dosage: IN THE EVENING
     Route: 048
     Dates: start: 20160831
  8. OXALIPLATIN. [Concomitant]
     Active Substance: OXALIPLATIN
     Indication: TUMOUR ULCERATION
     Route: 041
     Dates: start: 20160831
  9. RALTITREXED [Concomitant]
     Active Substance: RALTITREXED
     Dates: start: 201808
  10. RALTITREXED [Concomitant]
     Active Substance: RALTITREXED
     Indication: TUMOUR ULCERATION
     Route: 041
     Dates: start: 20170322
  11. RALTITREXED [Concomitant]
     Active Substance: RALTITREXED
     Route: 041
     Dates: start: 20200107
  12. RALTITREXED [Concomitant]
     Active Substance: RALTITREXED
     Dates: start: 20190703
  13. RALTITREXED [Concomitant]
     Active Substance: RALTITREXED
     Route: 041
     Dates: start: 20170929
  14. RALTITREXED [Concomitant]
     Active Substance: RALTITREXED
     Dates: start: 20181008

REACTIONS (5)
  - Liver injury [Unknown]
  - Abdominal pain [Unknown]
  - Myelosuppression [Unknown]
  - Gastrointestinal disorder [Unknown]
  - Diarrhoea [Unknown]
